FAERS Safety Report 22968844 (Version 2)
Quarter: 2023Q4

REPORT INFORMATION
  Report Type: Spontaneous
  Country: IT (occurrence: IT)
  Receive Date: 20230922
  Receipt Date: 20231006
  Transmission Date: 20240110
  Serious: Yes (Hospitalization, Other)
  Sender: FDA-Public Use
  Company Number: None

PATIENT
  Age: 76 Year
  Sex: Male

DRUGS (5)
  1. RIFAMPIN [Suspect]
     Active Substance: RIFAMPIN
     Indication: Immune tolerance induction
     Dosage: 1 DF (DESENSITIZATION SCHEME: FRACTIONATED DOSES AT INCREASING DOSES THROUGHOUT THE DAY. 1 DF )
     Route: 048
     Dates: start: 20230723, end: 20230802
  2. ISONIAZID [Concomitant]
     Active Substance: ISONIAZID
     Indication: Immune tolerance induction
     Dosage: 1 DF
     Route: 065
     Dates: start: 20230720, end: 20230720
  3. PYRAZINAMIDE [Concomitant]
     Active Substance: PYRAZINAMIDE
     Dosage: UNK
     Route: 065
     Dates: start: 2023
  4. BEDAQUILINE [Concomitant]
     Active Substance: BEDAQUILINE
     Dosage: UNK
     Route: 065
     Dates: start: 2023
  5. MOXIFLOXACIN [Concomitant]
     Active Substance: MOXIFLOXACIN
     Dosage: UNK
     Route: 065
     Dates: start: 2023

REACTIONS (6)
  - Type IV hypersensitivity reaction [Recovered/Resolved]
  - Skin reaction [Recovered/Resolved]
  - Urticaria [Recovered/Resolved]
  - Drug-induced liver injury [Recovered/Resolved]
  - Skin burning sensation [Recovered/Resolved]
  - Transaminases increased [Recovered/Resolved]

NARRATIVE: CASE EVENT DATE: 20230723
